FAERS Safety Report 9373015 (Version 2)
Quarter: 2013Q3

REPORT INFORMATION
  Report Type: Spontaneous
  Country: BR (occurrence: BR)
  Receive Date: 20130627
  Receipt Date: 20130924
  Transmission Date: 20140515
  Serious: Yes (Hospitalization, Other)
  Sender: FDA-Public Use
  Company Number: BR-ASTRAZENECA-2013SE48330

PATIENT
  Age: 73 Year
  Sex: Female
  Weight: 68 kg

DRUGS (7)
  1. ATACAND [Suspect]
     Indication: HYPERTENSION
     Route: 048
     Dates: start: 2001
  2. CRESTOR [Suspect]
     Indication: BLOOD CHOLESTEROL INCREASED
     Route: 048
     Dates: start: 2001
  3. SELOZOK [Suspect]
     Indication: CARDIAC DISORDER
     Route: 048
     Dates: start: 2011
  4. TICLID [Concomitant]
     Dosage: EVERY MORNING
  5. CALCIUM [Concomitant]
     Dosage: EVERY MORNING
  6. UNSPECIFIED HERBAL MEDICINE [Concomitant]
     Dosage: DAILY
  7. ZETIA [Concomitant]
     Dosage: AT NIGHT

REACTIONS (3)
  - Tendon rupture [Recovered/Resolved]
  - Device occlusion [Not Recovered/Not Resolved]
  - Liver disorder [Unknown]
